FAERS Safety Report 10640361 (Version 1)
Quarter: 2014Q4

REPORT INFORMATION
  Report Type: Other
  Country: US (occurrence: US)
  Receive Date: 20141209
  Receipt Date: 20141209
  Transmission Date: 20150529
  Serious: Yes (Hospitalization)
  Sender: FDA-Public Use
  Company Number: US-ENDO PHARMACEUTICALS INC-LEVE20140016

PATIENT
  Age: 19 Year
  Sex: Male

DRUGS (1)
  1. LEVETIRACETAM EXTENDED-RELEASE EXTENDED RELEASE [Suspect]
     Active Substance: LEVETIRACETAM
     Indication: PARTIAL SEIZURES WITH SECONDARY GENERALISATION
     Route: 048

REACTIONS (2)
  - Myoglobin blood increased [None]
  - Blood creatine phosphokinase increased [Recovered/Resolved]
